FAERS Safety Report 5760005-5 (Version None)
Quarter: 2008Q2

REPORT INFORMATION
  Report Type: 
  Country: None (occurrence: None)
  Receive Date: 20080605
  Receipt Date: 20080418
  Transmission Date: 20081010
  Serious: Yes (Other)
  Sender: FDA-Public Use
  Company Number: PHBS2008US04177

PATIENT
  Age: 1 Day
  Weight: 1.968 kg

DRUGS (4)
  1. CYCLOSPORINE [Suspect]
     Dosage: MATERNAL DOSE: 220 MG/D
     Route: 064
  2. CYCLOSPORINE [Suspect]
     Dosage: MATERNAL DOSE: 400 MG/D
     Route: 064
  3. HYDROCORTISONE [Concomitant]
     Route: 064
  4. ASPIRIN [Concomitant]
     Route: 064

REACTIONS (2)
  - DRUG EXPOSURE DURING PREGNANCY [None]
  - SMALL FOR DATES BABY [None]
